FAERS Safety Report 5237590-5 (Version None)
Quarter: 2007Q1

REPORT INFORMATION
  Report Type: 
  Country: None (occurrence: None)
  Receive Date: 20070213
  Receipt Date: 20070202
  Transmission Date: 20070707
  Serious: Yes (Other)
  Sender: FDA-Public Use
  Company Number: GB-PFIZER INC-2007009740

PATIENT
  Age: 66 Year
  Sex: Female

DRUGS (3)
  1. LYRICA [Suspect]
     Route: 048
  2. AMITRIPTYLINE HCL [Concomitant]
     Route: 048
     Dates: start: 20050801, end: 20061201
  3. GABAPENTIN [Concomitant]
     Route: 048
     Dates: start: 20060201, end: 20061201

REACTIONS (1)
  - JOINT SWELLING [None]
